FAERS Safety Report 7629096-0 (Version None)
Quarter: 2011Q3

REPORT INFORMATION
  Report Type: 
  Country: None (occurrence: None)
  Receive Date: 20110722
  Receipt Date: 20110722
  Transmission Date: 20111222
  Serious: Yes (Other)
  Sender: FDA-Public Use
  Company Number: None

PATIENT
  Age: 43 Year
  Sex: Female
  Weight: 73.935 kg

DRUGS (1)
  1. HUMAN CHORIONIC GONADOTROPIN [Suspect]
     Indication: OVERWEIGHT
     Dosage: 125 INTERNATIONAL UNITS
     Route: 060
     Dates: start: 20110204, end: 20110301

REACTIONS (2)
  - ALOPECIA EFFLUVIUM [None]
  - WEIGHT INCREASED [None]
